FAERS Safety Report 17402731 (Version 1)
Quarter: 2020Q1

REPORT INFORMATION
  Report Type: Spontaneous
  Country: US (occurrence: US)
  Receive Date: 20200210
  Receipt Date: 20200210
  Transmission Date: 20200409
  Serious: Yes (Other)
  Sender: FDA-Public Use
  Company Number: None

PATIENT
  Age: 13 Year
  Sex: Male
  Weight: 39.9 kg

DRUGS (2)
  1. EPIDIOLEX [Suspect]
     Active Substance: CANNABIDIOL
     Indication: EPILEPSY
     Route: 048
     Dates: start: 20191123, end: 20200201
  2. CLOBAZAM 10MG [Concomitant]

REACTIONS (9)
  - Decreased interest [None]
  - Atonic seizures [None]
  - Decreased appetite [None]
  - Septic shock [None]
  - Nasopharyngitis [None]
  - Abnormal behaviour [None]
  - Somnolence [None]
  - Cognitive disorder [None]
  - Ill-defined disorder [None]

NARRATIVE: CASE EVENT DATE: 20191125
